FAERS Safety Report 9015850 (Version 3)
Quarter: 2013Q2

REPORT INFORMATION
  Report Type: Report from Study
  Country: BR (occurrence: BR)
  Receive Date: 20130116
  Receipt Date: 20130523
  Transmission Date: 20140414
  Serious: Yes (Other)
  Sender: FDA-Public Use
  Company Number: BR-ROCHE-1051858

PATIENT
  Sex: Female
  Weight: 59 kg

DRUGS (4)
  1. MABTHERA [Suspect]
     Indication: PRODUCT USED FOR UNKNOWN INDICATION
     Dosage: ON 23/JUL/2012, THE PATIENT HAD LAST INFUSION.
     Route: 042
     Dates: start: 20100201
  2. ACTEMRA [Suspect]
     Indication: RHEUMATOID ARTHRITIS
     Route: 042
     Dates: start: 20130208
  3. METHOTREXATE [Concomitant]
  4. PURAN T4 [Concomitant]
     Indication: THYROID DISORDER

REACTIONS (6)
  - Gallbladder disorder [Not Recovered/Not Resolved]
  - Arthralgia [Recovering/Resolving]
  - Pain in extremity [Recovering/Resolving]
  - Pain in extremity [Recovering/Resolving]
  - Urinary tract infection [Recovered/Resolved]
  - Pain [Unknown]
